FAERS Safety Report 20964921 (Version 7)
Quarter: 2022Q4

REPORT INFORMATION
  Report Type: Report from Study
  Country: US (occurrence: US)
  Receive Date: 20220616
  Receipt Date: 20221216
  Transmission Date: 20230113
  Serious: Yes (Other)
  Sender: FDA-Public Use
  Company Number: US-NOVARTISPH-NVSC2022US138051

PATIENT
  Age: 30 Year
  Sex: Female

DRUGS (1)
  1. KESIMPTA [Suspect]
     Active Substance: OFATUMUMAB
     Indication: Multiple sclerosis
     Dosage: 20 MG, QMO
     Route: 058
     Dates: start: 20220424

REACTIONS (8)
  - Choking [Recovering/Resolving]
  - Pain [Recovered/Resolved]
  - Limb discomfort [Unknown]
  - Fatigue [Recovering/Resolving]
  - Injection site haemorrhage [Recovered/Resolved]
  - Injection site haemorrhage [Unknown]
  - Accidental exposure to product [Unknown]
  - Device use issue [Unknown]

NARRATIVE: CASE EVENT DATE: 20220424
